FAERS Safety Report 14126628 (Version 1)
Quarter: 2017Q4

REPORT INFORMATION
  Report Type: Spontaneous
  Country: US (occurrence: US)
  Receive Date: 20171025
  Receipt Date: 20171025
  Transmission Date: 20180321
  Serious: Yes (Hospitalization, Other)
  Sender: FDA-Public Use
  Company Number: US-ALKERMES INC.-ALK-2017-003820

PATIENT
  Age: 31 Year
  Sex: Male
  Weight: 90.7 kg

DRUGS (8)
  1. VIVITROL [Suspect]
     Active Substance: NALTREXONE
     Indication: ALCOHOLISM
     Dosage: 380 MG, QMO
     Route: 030
     Dates: start: 201503, end: 201506
  2. CYMBALTA [Concomitant]
     Active Substance: DULOXETINE HYDROCHLORIDE
     Indication: PRODUCT USED FOR UNKNOWN INDICATION
     Dosage: 60 MG, QD
  3. MYDAYIS [Concomitant]
     Active Substance: AMPHETAMINE ASPARTATE\AMPHETAMINE SULFATE\DEXTROAMPHETAMINE SACCHARATE\DEXTROAMPHETAMINE SULFATE
     Indication: ATTENTION DEFICIT/HYPERACTIVITY DISORDER
     Dosage: 12.5 MG, 5 TIMES/WK
  4. GABAPENTIN. [Concomitant]
     Active Substance: GABAPENTIN
     Indication: ANXIETY
     Dosage: UNK, TID
  5. TRAZODONE [Concomitant]
     Active Substance: TRAZODONE HYDROCHLORIDE
     Indication: PRODUCT USED FOR UNKNOWN INDICATION
     Dosage: 100 MG, HS
  6. GABAPENTIN. [Concomitant]
     Active Substance: GABAPENTIN
     Indication: ALCOHOLISM
  7. WELLBUTRIN [Concomitant]
     Active Substance: BUPROPION HYDROCHLORIDE
     Indication: PRODUCT USED FOR UNKNOWN INDICATION
     Dosage: 150 MG, UNK
  8. VIVITROL [Suspect]
     Active Substance: NALTREXONE
     Dosage: 380 MG, QMO
     Route: 030
     Dates: start: 20170807

REACTIONS (13)
  - Neutrophil count decreased [Recovered/Resolved]
  - General physical health deterioration [Not Recovered/Not Resolved]
  - Bone marrow failure [Unknown]
  - Lymphadenopathy [Not Recovered/Not Resolved]
  - Pain [Unknown]
  - Lymphocyte count increased [Unknown]
  - Pyrexia [Unknown]
  - Mood swings [Not Recovered/Not Resolved]
  - Alcoholic hangover [Unknown]
  - Drug effect decreased [Not Recovered/Not Resolved]
  - Bone pain [Unknown]
  - Alcoholism [Recovering/Resolving]
  - Splenomegaly [Not Recovered/Not Resolved]

NARRATIVE: CASE EVENT DATE: 201703
